FAERS Safety Report 7796848-6 (Version None)
Quarter: 2011Q4

REPORT INFORMATION
  Report Type: 
  Country: None (occurrence: None)
  Receive Date: 20111005
  Receipt Date: 20110927
  Transmission Date: 20120403
  Serious: Yes (Other)
  Sender: FDA-Public Use
  Company Number: US-UCBSA-041889

PATIENT
  Age: 41 Year
  Sex: Male

DRUGS (1)
  1. VIMPAT [Suspect]
     Dosage: CV 150

REACTIONS (1)
  - CONVULSION [None]
